FAERS Safety Report 20907948 (Version 3)
Quarter: 2022Q2

REPORT INFORMATION
  Report Type: Report from Study
  Country: MX (occurrence: MX)
  Receive Date: 20220602
  Receipt Date: 20220620
  Transmission Date: 20220721
  Serious: Yes (Death, Life-Threatening, Hospitalization)
  Sender: FDA-Public Use
  Company Number: MX-BIOGEN-2022BI01123949

PATIENT
  Age: 58 Year
  Sex: Male

DRUGS (3)
  1. TYSABRI [Suspect]
     Active Substance: NATALIZUMAB
     Indication: Relapsing-remitting multiple sclerosis
     Route: 065
     Dates: start: 20160120
  2. TYSABRI [Suspect]
     Active Substance: NATALIZUMAB
     Route: 042
     Dates: start: 20160224, end: 20220302
  3. TYSABRI [Suspect]
     Active Substance: NATALIZUMAB

REACTIONS (5)
  - Upper gastrointestinal haemorrhage [Fatal]
  - Hypovolaemic shock [Fatal]
  - Tachycardia [Not Recovered/Not Resolved]
  - Tachypnoea [Not Recovered/Not Resolved]
  - Depressed level of consciousness [Not Recovered/Not Resolved]

NARRATIVE: CASE EVENT DATE: 20220415
